FAERS Safety Report 5657646-2 (Version None)
Quarter: 2008Q1

REPORT INFORMATION
  Report Type: 
  Country: None (occurrence: None)
  Receive Date: 20080305
  Receipt Date: 20080227
  Transmission Date: 20080703
  Serious: Yes (Death, Hospitalization, Other)
  Sender: FDA-Public Use
  Company Number: CLOF-1000073

PATIENT
  Age: 9 Year
  Sex: Female

DRUGS (1)
  1. CLOFARABINE (CLOFARABINE) SOLUTION FOR INFUSION [Suspect]
     Indication: DRUG USE FOR UNKNOWN INDICATION
     Dosage: 52 MG/M2, INTRAVENOUS; 40 MG/M2, QDX5, INTRAVENOUS
     Route: 042
     Dates: start: 20080214, end: 20080218

REACTIONS (10)
  - ABDOMINAL PAIN [None]
  - ASTHENIA [None]
  - CEREBRAL ARTERY OCCLUSION [None]
  - CEREBROVASCULAR ACCIDENT [None]
  - DEHYDRATION [None]
  - DIARRHOEA [None]
  - PULMONARY OEDEMA [None]
  - RADIATION INJURY [None]
  - SKIN HYPERTROPHY [None]
  - VASCULITIS [None]
